FAERS Safety Report 4368353-0 (Version None)
Quarter: 2004Q2

REPORT INFORMATION
  Report Type: 
  Country: None (occurrence: None)
  Receive Date: 20040525
  Receipt Date: 20040512
  Transmission Date: 20050107
  Serious: Yes (Hospitalization)
  Sender: FDA-Public Use
  Company Number: 2004-BP-03808YA

PATIENT
  Sex: Male

DRUGS (3)
  1. HARNAL (TAMSULOSIN) [Suspect]
     Dosage: SEE IMAGE
     Route: 048
     Dates: start: 20030301, end: 20030301
  2. HARNAL (TAMSULOSIN) [Suspect]
     Dosage: SEE IMAGE
     Route: 048
     Dates: start: 20040301, end: 20040416
  3. ASPIRIN [Suspect]
     Dosage: 100 MG

REACTIONS (3)
  - ABDOMINAL PAIN [None]
  - ANAL HAEMORRHAGE [None]
  - DRUG INTERACTION [None]
